FAERS Safety Report 24109043 (Version 1)
Quarter: 2024Q3

REPORT INFORMATION
  Report Type: Spontaneous
  Country: US (occurrence: US)
  Receive Date: 20240718
  Receipt Date: 20240718
  Transmission Date: 20241016
  Serious: Yes (Hospitalization)
  Sender: ACCORD
  Company Number: US-MLMSERVICE-20240628-PI112447-00101-1

PATIENT
  Age: 64 Year
  Sex: Male

DRUGS (2)
  1. CISPLATIN [Suspect]
     Active Substance: CISPLATIN
     Indication: Bladder transitional cell carcinoma
     Dosage: SPLIT DOSE (DOSE 35 MG/M2 ON DAY 1 +AMP; 8 GIVEN EVERY 21-DAY CYCLES)
  2. GEMCITABINE [Suspect]
     Active Substance: GEMCITABINE
     Indication: Bladder transitional cell carcinoma
     Dosage: SPLIT DOSE (DOSE 1000 MG/M2 ON DAY 1 +AMP; 8 GIVEN EVERY 21-DAY CYCLES)

REACTIONS (1)
  - Immune thrombocytopenia [Unknown]
